FAERS Safety Report 7610642-8 (Version None)
Quarter: 2011Q3

REPORT INFORMATION
  Report Type: 
  Country: None (occurrence: None)
  Receive Date: 20110715
  Receipt Date: 20110628
  Transmission Date: 20111222
  Serious: Yes (Other)
  Sender: FDA-Public Use
  Company Number: US-BAYER-201034147NA

PATIENT
  Age: 34 Year
  Sex: Female
  Weight: 75.283 kg

DRUGS (3)
  1. GLUCOSAMINE W/CHONDROITIN SULFATE [Concomitant]
     Indication: ARTHRALGIA
  2. FLUOXETINE [Concomitant]
     Indication: ANXIETY
     Dosage: 20 MG, UNK
     Route: 048
     Dates: start: 20030201, end: 20040401
  3. YASMIN [Suspect]
     Indication: ORAL CONTRACEPTION
     Route: 065
     Dates: start: 20030701, end: 20050601

REACTIONS (4)
  - ABDOMINAL PAIN [None]
  - CHOLECYSTITIS CHRONIC [None]
  - CHOLELITHIASIS [None]
  - GALLBLADDER DISORDER [None]
